FAERS Safety Report 6790851-0 (Version None)
Quarter: 2010Q2

REPORT INFORMATION
  Report Type: 
  Country: None (occurrence: None)
  Receive Date: 20100624
  Receipt Date: 20100618
  Transmission Date: 20101027
  Serious: Yes (Disabling)
  Sender: FDA-Public Use
  Company Number: A0866105A

PATIENT
  Age: 86 Year
  Sex: Male

DRUGS (4)
  1. CARVEDILOL [Suspect]
     Indication: ARRHYTHMIA
     Dosage: 9.375MG PER DAY
     Route: 048
     Dates: start: 20091001
  2. SOTALOL [Suspect]
     Indication: DRUG USE FOR UNKNOWN INDICATION
     Route: 065
  3. DIOVAN [Concomitant]
  4. LIPITOR [Concomitant]

REACTIONS (2)
  - DYSPNOEA [None]
  - FATIGUE [None]
